FAERS Safety Report 8489543-1 (Version None)
Quarter: 2012Q3

REPORT INFORMATION
  Report Type: 
  Country: None (occurrence: None)
  Receive Date: 20120705
  Receipt Date: 20120626
  Transmission Date: 20120928
  Serious: Yes (Hospitalization)
  Sender: FDA-Public Use
  Company Number: JP-VERTEX PHARMACEUTICALS INC.-AE-2012-009541

PATIENT
  Age: 66 Year
  Sex: Female

DRUGS (6)
  1. PEG-INTRON [Concomitant]
     Indication: HEPATITIS C
     Route: 058
     Dates: start: 20120612, end: 20120618
  2. REBETOL [Concomitant]
     Indication: HEPATITIS C
     Route: 048
     Dates: start: 20120612, end: 20120618
  3. REBETOL [Concomitant]
     Route: 048
     Dates: start: 20120625
  4. TELAVIC (TELAPREVIR) [Suspect]
     Indication: HEPATITIS C
     Route: 048
     Dates: start: 20120612, end: 20120618
  5. TELAVIC (TELAPREVIR) [Suspect]
     Route: 048
     Dates: start: 20120625
  6. PEG-INTRON [Concomitant]
     Route: 058
     Dates: start: 20120625

REACTIONS (1)
  - RASH [None]
